FAERS Safety Report 19509904 (Version 1)
Quarter: 2021Q3

REPORT INFORMATION
  Report Type: Spontaneous
  Country: JP (occurrence: JP)
  Receive Date: 20210708
  Receipt Date: 20210708
  Transmission Date: 20211014
  Serious: Yes (Other)
  Sender: FDA-Public Use
  Company Number: JP-KYOWAKIRIN-2021BKK011918

PATIENT

DRUGS (1)
  1. FARESTON [Suspect]
     Active Substance: TOREMIFENE CITRATE
     Indication: BREAST CANCER
     Dosage: TAB 40
     Route: 048

REACTIONS (2)
  - Haemorrhage [Recovering/Resolving]
  - Endometrial thickening [Recovering/Resolving]

NARRATIVE: CASE EVENT DATE: 20210624
